FAERS Safety Report 12849336 (Version 1)
Quarter: 2016Q4

REPORT INFORMATION
  Report Type: Spontaneous
  Country: FR (occurrence: FR)
  Receive Date: 20161014
  Receipt Date: 20161014
  Transmission Date: 20170207
  Serious: Yes (Hospitalization)
  Sender: FDA-Public Use
  Company Number: FR-TEVA-698824ROM

PATIENT
  Age: 74 Year
  Sex: Male

DRUGS (9)
  1. PAMIDRONATE DE SODIUM [Concomitant]
     Active Substance: PAMIDRONATE DISODIUM
     Route: 042
  2. VIRAFERON [Concomitant]
     Active Substance: INTERFERON ALFA-2B
     Route: 058
  3. XYZALL [Concomitant]
     Active Substance: LEVOCETIRIZINE DIHYDROCHLORIDE
     Route: 048
  4. COVERSYL 10 MG [Concomitant]
     Dosage: 1 DOSAGE FORMS DAILY;
     Route: 048
  5. AZILECT [Suspect]
     Active Substance: RASAGILINE MESYLATE
     Indication: PARKINSON^S DISEASE
     Dosage: 1 DOSAGE FORMS DAILY;
     Route: 048
     Dates: start: 20151103, end: 20151117
  6. ALLOPURINOL. [Concomitant]
     Active Substance: ALLOPURINOL
     Route: 048
  7. TAHOR [Concomitant]
     Active Substance: ATORVASTATIN CALCIUM
     Route: 048
  8. ZOLPIDEM [Concomitant]
     Active Substance: ZOLPIDEM\ZOLPIDEM TARTRATE
     Route: 048
  9. FINASTERIDE. [Concomitant]
     Active Substance: FINASTERIDE
     Route: 048

REACTIONS (2)
  - Language disorder [Recovered/Resolved]
  - Abnormal behaviour [Recovered/Resolved]

NARRATIVE: CASE EVENT DATE: 20151117
